FAERS Safety Report 9630730 (Version 1)
Quarter: 2013Q4

REPORT INFORMATION
  Report Type: Spontaneous
  Country: US (occurrence: None)
  Receive Date: 20131016
  Receipt Date: 20131016
  Transmission Date: 20140711
  Serious: Yes (Hospitalization)
  Sender: FDA-Public Use
  Company Number: 13AE021

PATIENT
  Age: 68 Year
  Sex: Male
  Weight: 77.11 kg

DRUGS (1)
  1. EQUATE DIPHENHYDRAMINE HCL 25MG CAPSULES [Suspect]
     Indication: MULTIPLE ALLERGIES
     Dosage: 1 BY MOUTH
     Route: 048
     Dates: start: 20131002, end: 20131003

REACTIONS (5)
  - Sneezing [None]
  - Rhinorrhoea [None]
  - Eye pruritus [None]
  - Rash [None]
  - Urticaria [None]
